FAERS Safety Report 6997966-2 (Version None)
Quarter: 2010Q3

REPORT INFORMATION
  Report Type: 
  Country: None (occurrence: None)
  Receive Date: 20100901
  Receipt Date: 20100520
  Transmission Date: 20110219
  Serious: Yes (Other)
  Sender: FDA-Public Use
  Company Number: 245367USA

PATIENT
  Sex: Female

DRUGS (2)
  1. NORDETTE-28 [Suspect]
     Indication: CONTRACEPTION
     Dosage: ORAL
     Route: 048
     Dates: start: 19970101
  2. WARFARIN SODIUM [Concomitant]

REACTIONS (4)
  - GALLBLADDER DISORDER [None]
  - GALLBLADDER OPERATION [None]
  - PULMONARY EMBOLISM [None]
  - VAGINAL HAEMORRHAGE [None]
